FAERS Safety Report 24712878 (Version 1)
Quarter: 2024Q4

REPORT INFORMATION
  Report Type: Spontaneous
  Country: US (occurrence: None)
  Receive Date: 20241208
  Receipt Date: 20241208
  Transmission Date: 20250114
  Serious: Yes (unspecified)
  Sender: Public
  Company Number: None

PATIENT
  Age: 32 Year
  Sex: Female
  Weight: 60.75 kg

DRUGS (4)
  1. JEUVEAU [Suspect]
     Active Substance: PRABOTULINUMTOXINA-XVFS
     Indication: Temporomandibular pain and dysfunction syndrome
     Route: 030
     Dates: start: 20241203, end: 20241203
  2. JEUVEAU [Suspect]
     Active Substance: PRABOTULINUMTOXINA-XVFS
     Indication: Bruxism
  3. Blisovi FE [Concomitant]
  4. THC with  CBD [Concomitant]

REACTIONS (6)
  - Paraesthesia [None]
  - Muscular weakness [None]
  - Muscular weakness [None]
  - Dysphagia [None]
  - Vision blurred [None]
  - Dry mouth [None]

NARRATIVE: CASE EVENT DATE: 20241207
